FAERS Safety Report 6072223-X (Version None)
Quarter: 2009Q1

REPORT INFORMATION
  Report Type: 
  Country: None (occurrence: None)
  Receive Date: 20090206
  Receipt Date: 20090206
  Transmission Date: 20090719
  Serious: Yes (Disabling)
  Sender: FDA-Public Use
  Company Number: None

PATIENT
  Age: 15 Year
  Sex: Male
  Weight: 97.5234 kg

DRUGS (1)
  1. ZICAM [Suspect]
     Indication: NASOPHARYNGITIS
     Dates: start: 20080127, end: 20080127

REACTIONS (2)
  - AGEUSIA [None]
  - ANOSMIA [None]
